FAERS Safety Report 9732879 (Version 3)
Quarter: 2015Q3

REPORT INFORMATION
  Report Type: Spontaneous
  Country: US (occurrence: US)
  Receive Date: 20131204
  Receipt Date: 20150804
  Transmission Date: 20151125
  Serious: No
  Sender: FDA-Public Use
  Company Number: US-GILEAD-2009-0021277

PATIENT
  Age: 78 Year
  Sex: Male

DRUGS (25)
  1. LETAIRIS [Suspect]
     Active Substance: AMBRISENTAN
     Indication: PULMONARY ARTERIAL HYPERTENSION
     Route: 048
     Dates: start: 20090304
  2. ALLOPURINOL. [Concomitant]
     Active Substance: ALLOPURINOL
  3. LANTUS [Concomitant]
     Active Substance: INSULIN GLARGINE
  4. CALCIUM [Concomitant]
     Active Substance: CALCIUM
  5. TYLENOL [Concomitant]
     Active Substance: ACETAMINOPHEN
  6. BIOTIN/NICOTINAMIDE/ASCORBIC ACID/CALCIUM PANTOTHENATE/CYANOCOBALAMIN/FOLIC ACID/RIBOFLAVIN/PYRIDOXI [Concomitant]
  7. METOLAZONE. [Concomitant]
     Active Substance: METOLAZONE
  8. NITROQUICK [Concomitant]
     Active Substance: NITROGLYCERIN
  9. FLUTICASONE [Concomitant]
     Active Substance: FLUTICASONE\FLUTICASONE PROPIONATE
  10. RANITIDINE [Concomitant]
     Active Substance: RANITIDINE\RANITIDINE HYDROCHLORIDE
  11. DIGOXIN. [Concomitant]
     Active Substance: DIGOXIN
  12. TEMAZEPAM. [Concomitant]
     Active Substance: TEMAZEPAM
  13. PLAVIX [Concomitant]
     Active Substance: CLOPIDOGREL BISULFATE
  14. BENICAR [Concomitant]
     Active Substance: OLMESARTAN MEDOXOMIL
  15. ASPIRIN FREE [Concomitant]
     Active Substance: ACETAMINOPHEN
  16. CITRUCEL [Concomitant]
     Active Substance: METHYLCELLULOSE (4000 MPA.S)
  17. GLIPIZIDE ER [Concomitant]
     Active Substance: GLIPIZIDE
  18. FLOMAX [Concomitant]
     Active Substance: TAMSULOSIN HYDROCHLORIDE
  19. METOPROLOL [Concomitant]
     Active Substance: METOPROLOL
  20. GEMFIBROZIL. [Concomitant]
     Active Substance: GEMFIBROZIL
  21. COMBIVENT [Concomitant]
     Active Substance: ALBUTEROL SULFATE\IPRATROPIUM BROMIDE
  22. LIPITOR [Concomitant]
     Active Substance: ATORVASTATIN CALCIUM
  23. FUROSEMIDE. [Concomitant]
     Active Substance: FUROSEMIDE
  24. SPIRIVA [Concomitant]
     Active Substance: TIOTROPIUM BROMIDE MONOHYDRATE
  25. MOBIC [Concomitant]
     Active Substance: MELOXICAM

REACTIONS (2)
  - Oedema [Not Recovered/Not Resolved]
  - Fluid retention [Not Recovered/Not Resolved]
